FAERS Safety Report 5764187-0 (Version None)
Quarter: 2008Q2

REPORT INFORMATION
  Report Type: 
  Country: None (occurrence: None)
  Receive Date: 20080610
  Receipt Date: 20080602
  Transmission Date: 20081010
  Serious: Yes (Other)
  Sender: FDA-Public Use
  Company Number: US-AMGEN-US284022

PATIENT
  Sex: Female

DRUGS (13)
  1. ARANESP [Suspect]
     Indication: RENAL FAILURE CHRONIC
     Route: 058
  2. GENGRAF [Concomitant]
  3. PREDNISONE TAB [Concomitant]
  4. CELLCEPT [Concomitant]
  5. FERROUS SULFATE TAB [Concomitant]
  6. FOLIC ACID [Concomitant]
  7. PROTONIX [Concomitant]
  8. AMLODIPINE [Concomitant]
  9. ATENOLOL [Concomitant]
  10. HYZAAR [Concomitant]
  11. TYLENOL [Concomitant]
  12. VITAMIN B-12 [Concomitant]
  13. VITAMIN CAP [Concomitant]

REACTIONS (6)
  - BLOOD CREATININE INCREASED [None]
  - CHRONIC ALLOGRAFT NEPHROPATHY [None]
  - ENDOMETRIAL NEOPLASM [None]
  - HYSTERECTOMY [None]
  - RENAL TRANSPLANT [None]
  - THERAPEUTIC RESPONSE DECREASED [None]
